FAERS Safety Report 7208121-5 (Version None)
Quarter: 2010Q4

REPORT INFORMATION
  Report Type: 
  Country: None (occurrence: None)
  Receive Date: 20101230
  Receipt Date: 20101230
  Transmission Date: 20110411
  Serious: Yes (Other)
  Sender: FDA-Public Use
  Company Number: None

PATIENT
  Age: 26 Year
  Sex: Female
  Weight: 68.0396 kg

DRUGS (1)
  1. METRONIDAZOLE [Suspect]
     Indication: INFECTION
     Dosage: 250MG 4XS DAILY
     Dates: start: 20101129, end: 20101206

REACTIONS (6)
  - CHILLS [None]
  - CONFUSIONAL STATE [None]
  - DIARRHOEA [None]
  - DIZZINESS [None]
  - INFLUENZA LIKE ILLNESS [None]
  - VOMITING [None]
